FAERS Safety Report 5885163-3 (Version None)
Quarter: 2008Q3

REPORT INFORMATION
  Report Type: 
  Country: None (occurrence: None)
  Receive Date: 20080915
  Receipt Date: 20080915
  Transmission Date: 20090109
  Serious: Yes (Other)
  Sender: FDA-Public Use
  Company Number: None

PATIENT
  Age: 54 Year
  Sex: Female
  Weight: 86.1834 kg

DRUGS (2)
  1. PRAVASTATIN SODIUM [Suspect]
     Indication: BLOOD CHOLESTEROL INCREASED
     Dosage: TWO -2- TABLES DAILY, BEDTIME
     Dates: start: 20080711, end: 20080815
  2. ROSUVASTATIN CALCIUM [Suspect]
     Indication: BLOOD CHOLESTEROL INCREASED
     Dosage: ONE-HALF EVERYDAY
     Dates: start: 20080820, end: 20080830

REACTIONS (2)
  - MUSCULAR WEAKNESS [None]
  - MYALGIA [None]
